FAERS Safety Report 13868920 (Version 1)
Quarter: 2017Q3

REPORT INFORMATION
  Report Type: Spontaneous
  Country: CN (occurrence: CN)
  Receive Date: 20170815
  Receipt Date: 20170815
  Transmission Date: 20171127
  Serious: Yes (Hospitalization)
  Sender: FDA-Public Use
  Company Number: CN-ROCHE-1976128

PATIENT
  Age: 29 Year
  Sex: Female
  Weight: 62 kg

DRUGS (5)
  1. EPIRUBICIN HYDROCHLORIDE. [Suspect]
     Active Substance: EPIRUBICIN HYDROCHLORIDE
     Indication: B-CELL LYMPHOMA
     Route: 041
     Dates: start: 20170211, end: 20170211
  2. SODIUM CHLORIDE. [Suspect]
     Active Substance: SODIUM CHLORIDE
     Indication: PRODUCT USED FOR UNKNOWN INDICATION
     Dosage: RECEIVED 500 ML AND 250 ML
     Route: 041
     Dates: start: 20170211, end: 20170211
  3. MABTHERA [Suspect]
     Active Substance: RITUXIMAB
     Indication: B-CELL LYMPHOMA
     Route: 041
     Dates: start: 20170211, end: 20170211
  4. VINDESINE SULFATE [Suspect]
     Active Substance: VINDESINE SULFATE
     Indication: B-CELL LYMPHOMA
     Route: 041
     Dates: start: 20170211, end: 20170211
  5. ADENOSINE CYCLOPHOSPHATE [Suspect]
     Active Substance: ADENOSINE
     Indication: B-CELL LYMPHOMA
     Route: 041
     Dates: start: 20170211, end: 20170211

REACTIONS (2)
  - Hepatic function abnormal [Recovering/Resolving]
  - Bone marrow failure [Recovering/Resolving]

NARRATIVE: CASE EVENT DATE: 20170301
